FAERS Safety Report 5463025-3 (Version None)
Quarter: 2007Q3

REPORT INFORMATION
  Report Type: 
  Country: None (occurrence: None)
  Receive Date: 20070918
  Receipt Date: 20070918
  Transmission Date: 20080115
  Serious: Yes (Life-Threatening, Hospitalization, Disabling)
  Sender: FDA-Public Use
  Company Number: None

PATIENT
  Age: 60 Year
  Sex: Female
  Weight: 63.05 kg

DRUGS (5)
  1. SEPTOCAINE [Suspect]
     Indication: DENTAL PROSTHESIS PLACEMENT
     Dates: start: 20070219, end: 20070219
  2. SEPTOCAINE [Suspect]
     Indication: ENDODONTIC PROCEDURE
     Dates: start: 20070219, end: 20070219
  3. SEPTOCAINE [Suspect]
     Indication: DENTAL PROSTHESIS PLACEMENT
     Dates: start: 20070601, end: 20070601
  4. SEPTOCAINE [Suspect]
     Indication: ENDODONTIC PROCEDURE
     Dates: start: 20070601, end: 20070601
  5. PREDNISONE [Concomitant]

REACTIONS (9)
  - CONTRAINDICATION TO MEDICAL TREATMENT [None]
  - DISORIENTATION [None]
  - FORMICATION [None]
  - GAIT DISTURBANCE [None]
  - HYPERTENSION [None]
  - HYPOAESTHESIA [None]
  - PARAESTHESIA [None]
  - SPEECH DISORDER [None]
  - THINKING ABNORMAL [None]
